FAERS Safety Report 4661997-8 (Version None)
Quarter: 2005Q2

REPORT INFORMATION
  Report Type: 
  Country: None (occurrence: None)
  Receive Date: 20050512
  Receipt Date: 20050427
  Transmission Date: 20051028
  Serious: Yes (Hospitalization)
  Sender: FDA-Public Use
  Company Number: 2005BI004012

PATIENT
  Sex: Female

DRUGS (5)
  1. NATALIZUMAB [Suspect]
     Indication: MULTIPLE SCLEROSIS
     Dosage: 300 MG; QM; IM
     Route: 030
     Dates: end: 20050210
  2. COPAXONE [Concomitant]
  3. TRILEPTAL [Concomitant]
  4. SYNTHROID [Concomitant]
  5. AMBIEN [Concomitant]

REACTIONS (5)
  - ERYTHEMA [None]
  - HYPERSENSITIVITY [None]
  - HYPOTENSION [None]
  - PRURITUS [None]
  - THERAPY NON-RESPONDER [None]
